FAERS Safety Report 14253667 (Version 2)
Quarter: 2018Q2

REPORT INFORMATION
  Report Type: Spontaneous
  Country: US (occurrence: US)
  Receive Date: 20171205
  Receipt Date: 20180605
  Transmission Date: 20180711
  Serious: Yes (Hospitalization, Other)
  Sender: FDA-Public Use
  Company Number: US-SANKYOGER-DSU-2013-02397

PATIENT

DRUGS (2)
  1. BENICAR [Suspect]
     Active Substance: OLMESARTAN MEDOXOMIL
     Indication: PRODUCT USED FOR UNKNOWN INDICATION
     Dosage: 20 MG, UNK
     Dates: start: 20080804, end: 20170628
  2. BENICAR HCT [Suspect]
     Active Substance: HYDROCHLOROTHIAZIDE\OLMESARTAN MEDOXOMIL
     Indication: ESSENTIAL HYPERTENSION
     Dosage: 20-12.5 MG, QD
     Route: 048
     Dates: start: 20080408, end: 20170628

REACTIONS (8)
  - Sprue-like enteropathy [Recovering/Resolving]
  - Gastrooesophageal reflux disease [Not Recovered/Not Resolved]
  - Irritable bowel syndrome [Unknown]
  - Diverticulum intestinal [Not Recovered/Not Resolved]
  - Umbilical hernia [Unknown]
  - Angle closure glaucoma [Not Recovered/Not Resolved]
  - Large intestine polyp [Recovered/Resolved]
  - Cholelithiasis [Not Recovered/Not Resolved]

NARRATIVE: CASE EVENT DATE: 20080912
